FAERS Safety Report 8564346-8 (Version None)
Quarter: 2012Q3

REPORT INFORMATION
  Report Type: 
  Country: None (occurrence: None)
  Receive Date: 20120803
  Receipt Date: 20120726
  Transmission Date: 20120928
  Serious: No
  Sender: FDA-Public Use
  Company Number: US-BAYER-2012-076221

PATIENT
  Age: 75 Year
  Sex: Female
  Weight: 68 kg

DRUGS (6)
  1. NAPROXEN (ALEVE) [Suspect]
     Indication: ARTHRITIS
     Dosage: UNK, PRN
     Route: 048
  2. ALEVE (CAPLET) [Suspect]
     Dosage: 2 DF, BID
     Route: 048
     Dates: start: 20120721, end: 20120721
  3. CARDIAC MEDICATION [Concomitant]
  4. ALEVE (CAPLET) [Suspect]
     Indication: ARTHRITIS
     Dosage: UNK
     Route: 048
     Dates: start: 20100701
  5. ALEVE (CAPLET) [Suspect]
     Dosage: UNK, PRN
     Route: 048
  6. BLOOD PRESSURE MEDICATION (NOS) [Concomitant]

REACTIONS (1)
  - ARTHRITIS [None]
